FAERS Safety Report 11464157 (Version 1)
Quarter: 2015Q3

REPORT INFORMATION
  Report Type: Spontaneous
  Country: US (occurrence: US)
  Receive Date: 20150831
  Receipt Date: 20150831
  Transmission Date: 20151125
  Serious: No
  Sender: FDA-Public Use
  Company Number: US-ELI_LILLY_AND_COMPANY-US201106006767

PATIENT
  Age: 69 Year
  Sex: Female

DRUGS (4)
  1. MILNACIPRAN [Concomitant]
     Active Substance: MILNACIPRAN
     Dosage: UNK, EACH MORNING
  2. CYMBALTA [Suspect]
     Active Substance: DULOXETINE HYDROCHLORIDE
     Dosage: 60 MG, EACH EVENING
  3. CYMBALTA [Suspect]
     Active Substance: DULOXETINE HYDROCHLORIDE
     Indication: FIBROMYALGIA
     Dosage: 30 MG, UNK
  4. MILNACIPRAN [Concomitant]
     Active Substance: MILNACIPRAN
     Dosage: UNK, BID

REACTIONS (4)
  - Sleep disorder [Unknown]
  - Contusion [Unknown]
  - Pain [Unknown]
  - Drug ineffective [Unknown]
